FAERS Safety Report 16582146 (Version 1)
Quarter: 2019Q3

REPORT INFORMATION
  Report Type: Spontaneous
  Country: US (occurrence: US)
  Receive Date: 20190603
  Receipt Date: 20190603
  Transmission Date: 20191004
  Serious: No
  Sender: FDA-Public Use
  Company Number: None

PATIENT

DRUGS (3)
  1. MYCELEX [Suspect]
     Active Substance: CLOTRIMAZOLE
  2. MYSOLINE [Suspect]
     Active Substance: PRIMIDONE
  3. NYSTATIN NYSTATIN [Suspect]
     Active Substance: NYSTATIN

REACTIONS (4)
  - Wrong product administered [None]
  - Product dispensing error [None]
  - Product prescribing error [None]
  - Malaise [None]
